FAERS Safety Report 5958076-6 (Version None)
Quarter: 2008Q4

REPORT INFORMATION
  Report Type: 
  Country: None (occurrence: None)
  Receive Date: 20081119
  Receipt Date: 20080902
  Transmission Date: 20090506
  Serious: Yes (Congenital Anomaly)
  Sender: FDA-Public Use
  Company Number: B0534930A

PATIENT

DRUGS (2)
  1. LAMIVUDINE [Suspect]
     Indication: ANTIVIRAL PROPHYLAXIS
  2. ZIDOVUDINE [Suspect]
     Indication: ANTIVIRAL PROPHYLAXIS

REACTIONS (2)
  - DRUG EXPOSURE DURING PREGNANCY [None]
  - PSYCHOMOTOR SKILLS IMPAIRED [None]
